FAERS Safety Report 7929508-9 (Version None)
Quarter: 2011Q4

REPORT INFORMATION
  Report Type: 
  Country: None (occurrence: None)
  Receive Date: 20111121
  Receipt Date: 20111108
  Transmission Date: 20120403
  Serious: Yes (Disabling, Other)
  Sender: FDA-Public Use
  Company Number: CA-ELI_LILLY_AND_COMPANY-CA201111002403

PATIENT
  Age: 58 Year
  Sex: Male
  Weight: 113.38 kg

DRUGS (25)
  1. ACETAMINOPHEN [Concomitant]
  2. CLOTRIMADERM [Concomitant]
  3. D-TABS [Concomitant]
  4. GLYBURIDE [Concomitant]
  5. METFORMIN HCL [Concomitant]
  6. VIADERM-KC [Concomitant]
  7. CYMBALTA [Suspect]
     Dosage: 60 MG, QD
     Route: 048
  8. CYMBALTA [Suspect]
     Dosage: UNK UNK, UNKNOWN
  9. CRESTOR [Concomitant]
  10. RAMIPRIL [Concomitant]
  11. LAX-A-DAY [Concomitant]
  12. MORPHINE SULFATE [Concomitant]
  13. NOVASEN [Concomitant]
  14. CYMBALTA [Suspect]
     Dosage: 30 MG, QD
     Route: 048
  15. DOM-ZOPICLONE [Concomitant]
  16. ELAVIL [Concomitant]
  17. METADOL [Concomitant]
  18. PMS DOCUSATE CALCIUM [Concomitant]
  19. LANSOPRAZOLE [Concomitant]
  20. CALCIUM [Concomitant]
     Dosage: UNK
  21. HYDROCHLOROTHIAZIDE [Concomitant]
  22. SIMVASTATIN [Concomitant]
  23. ALENDRONATE SODIUM [Concomitant]
  24. APO-BACLOFEN [Concomitant]
  25. SENNOSIDE [Concomitant]

REACTIONS (4)
  - MUSCULAR DYSTROPHY [None]
  - MUSCLE SPASMS [None]
  - CHEST DISCOMFORT [None]
  - ABDOMINAL PAIN UPPER [None]
